FAERS Safety Report 24932070 (Version 1)
Quarter: 2025Q1

REPORT INFORMATION
  Report Type: Report from Study
  Country: US (occurrence: US)
  Receive Date: 20250205
  Receipt Date: 20250205
  Transmission Date: 20250409
  Serious: No
  Sender: EXELIXIS
  Company Number: US-EXELIXIS-CABO-24079566

PATIENT
  Sex: Male
  Weight: 82.54 kg

DRUGS (1)
  1. CABOMETYX [Suspect]
     Active Substance: CABOZANTINIB S-MALATE
     Indication: Renal cancer
     Dosage: 60 MG, QD (20 MG, TAKE 3 TABLETS BY MOUTH ONCE DAILY)
     Route: 048

REACTIONS (2)
  - Drug intolerance [Unknown]
  - Oral mucosal blistering [Unknown]
